FAERS Safety Report 18238492 (Version 4)
Quarter: 2020Q4

REPORT INFORMATION
  Report Type: Report from Study
  Country: FR (occurrence: FR)
  Receive Date: 20200907
  Receipt Date: 20201224
  Transmission Date: 20210113
  Serious: Yes (Hospitalization)
  Sender: FDA-Public Use
  Company Number: FR-ROCHE-2670334

PATIENT
  Age: 70 Year
  Sex: Female
  Weight: 52 kg

DRUGS (4)
  1. COVERSYL [Concomitant]
     Active Substance: PERINDOPRIL
     Indication: HYPERTENSION
     Route: 048
  2. COBIMETINIB. [Suspect]
     Active Substance: COBIMETINIB
     Indication: NON-SMALL CELL LUNG CANCER
     Dosage: ON DAYS 1-21?DATE OF MOST RECENT DOSE PRIOR TO SAE: 30/AUG/2020 60 MG
     Route: 048
     Dates: start: 20200820
  3. VEMURAFENIB. [Suspect]
     Active Substance: VEMURAFENIB
     Indication: NON-SMALL CELL LUNG CANCER
     Dosage: ON DAYS 1- 21?ON DAYS 22-28 DOSE 720 MG?MOST RECENT DOSE PRIOR TO SAE: 30/AUG/2020 960 MG
     Route: 048
     Dates: start: 20200820
  4. CORTANCYL [Concomitant]
     Active Substance: PREDNISONE
     Indication: COUGH
     Route: 048
     Dates: start: 20200706, end: 20200806

REACTIONS (1)
  - Drug reaction with eosinophilia and systemic symptoms [Recovered/Resolved]

NARRATIVE: CASE EVENT DATE: 20200831
